FAERS Safety Report 4788219-1 (Version None)
Quarter: 2005Q4

REPORT INFORMATION
  Report Type: 
  Country: None (occurrence: None)
  Receive Date: 20051005
  Receipt Date: 20050923
  Transmission Date: 20060501
  Serious: Yes (Hospitalization)
  Sender: FDA-Public Use
  Company Number: JP-ROCHE-418655

PATIENT
  Age: 71 Year
  Sex: Male

DRUGS (7)
  1. PANALDINE [Suspect]
     Indication: MYOCARDIAL INFARCTION
     Route: 048
     Dates: start: 20050701, end: 20050815
  2. ASPIRIN [Concomitant]
     Dates: end: 20050815
  3. NU-LOTAN [Concomitant]
     Route: 048
     Dates: end: 20050815
  4. ISOSORBIDE MONONITRATE [Concomitant]
     Route: 048
     Dates: end: 20050815
  5. SIGMART [Concomitant]
     Route: 048
     Dates: end: 20050815
  6. BASEN [Concomitant]
     Route: 048
     Dates: end: 20050815
  7. GASTER [Concomitant]
     Dates: end: 20050815

REACTIONS (2)
  - JAUNDICE [None]
  - LIVER DISORDER [None]
